FAERS Safety Report 8757326 (Version 2)
Quarter: 2012Q4

REPORT INFORMATION
  Report Type: 
  Country: US (occurrence: US)
  Receive Date: 20120828
  Receipt Date: 20121109
  Transmission Date: 20130627
  Serious: No
  Sender: FDA-Public Use
  Company Number: US-009507513-1207USA006960

PATIENT
  Age: 12 Year
  Sex: Male

DRUGS (4)
  1. REMERON [Suspect]
     Indication: SLEEP DISORDER
     Dosage: UNK
     Route: 048
     Dates: start: 201205, end: 2012
  2. CLONIDINE [Suspect]
     Dosage: 01 mg, qd
     Dates: start: 201201, end: 201207
  3. ADDERALL TABLETS [Concomitant]
  4. PROZAC [Concomitant]

REACTIONS (1)
  - Confusional state [Recovered/Resolved]
